FAERS Safety Report 7366752-6 (Version None)
Quarter: 2011Q1

REPORT INFORMATION
  Report Type: 
  Country: None (occurrence: None)
  Receive Date: 20110322
  Receipt Date: 20110316
  Transmission Date: 20110831
  Serious: Yes (Hospitalization)
  Sender: FDA-Public Use
  Company Number: US-PFIZER INC-2011058192

PATIENT
  Sex: Female
  Weight: 30.8 kg

DRUGS (1)
  1. DEPO-PROVERA [Suspect]
     Indication: CONTRACEPTION
     Dosage: UNK
     Dates: start: 19950501, end: 19980101

REACTIONS (5)
  - WEIGHT DECREASED [None]
  - FEMUR FRACTURE [None]
  - MUSCLE SPASMS [None]
  - INSOMNIA [None]
  - PAIN [None]
